FAERS Safety Report 9924556 (Version 3)
Quarter: 2014Q2

REPORT INFORMATION
  Report Type: Spontaneous
  Country: US (occurrence: US)
  Receive Date: 20140226
  Receipt Date: 20140424
  Transmission Date: 20141212
  Serious: No
  Sender: FDA-Public Use
  Company Number: US-PFIZER INC-2014054767

PATIENT
  Age: 76 Year
  Sex: Female

DRUGS (1)
  1. AROMASIN [Suspect]
     Dosage: UNK

REACTIONS (4)
  - Hot flush [Unknown]
  - Insomnia [Unknown]
  - Fatigue [Unknown]
  - Weight increased [Unknown]
